FAERS Safety Report 11078873 (Version 1)
Quarter: 2015Q2

REPORT INFORMATION
  Report Type: Spontaneous
  Country: US (occurrence: None)
  Receive Date: 20150429
  Receipt Date: 20150429
  Transmission Date: 20150821
  Serious: Yes (Other)
  Sender: FDA-Public Use
  Company Number: None

PATIENT
  Age: 63 Year
  Sex: Male
  Weight: 75.3 kg

DRUGS (1)
  1. AVONEX [Suspect]
     Active Substance: INTERFERON BETA-1A
     Dosage: DOSE FORM: INJECTABLE   FREQUENCY: ONCE WEEKLY  ROUTE: INTRAMUSCULAR
     Route: 030
     Dates: start: 20141001

REACTIONS (2)
  - Disease recurrence [None]
  - Nuclear magnetic resonance imaging abnormal [None]

NARRATIVE: CASE EVENT DATE: 20150212
